FAERS Safety Report 10475266 (Version 1)
Quarter: 2014Q3

REPORT INFORMATION
  Report Type: Spontaneous
  Country: US (occurrence: US)
  Receive Date: 20140925
  Receipt Date: 20140925
  Transmission Date: 20150326
  Serious: Yes (Other)
  Sender: FDA-Public Use
  Company Number: PHEH2014US018653

PATIENT
  Sex: Female

DRUGS (5)
  1. CALCIUM [Concomitant]
     Active Substance: CALCIUM
     Dosage: UNK UKN, UNK
  2. RECLAST [Suspect]
     Active Substance: ZOLEDRONIC ACID
     Indication: OSTEOPOROSIS
     Dosage: UNK, YEARLY
     Route: 042
     Dates: start: 20130830
  3. VITAMIN D [Concomitant]
     Active Substance: CHOLECALCIFEROL
     Dosage: UNK UKN, UNK
  4. LISINOPRIL. [Concomitant]
     Active Substance: LISINOPRIL
     Indication: RENAL INJURY
     Dosage: UNK UKN, UNK
  5. CELLCEPT [Concomitant]
     Active Substance: MYCOPHENOLATE MOFETIL\MYCOPHENOLATE MOFETIL HYDROCHLORIDE
     Indication: RENAL INJURY
     Dosage: UNK UKN, UNK

REACTIONS (9)
  - Renal impairment [Unknown]
  - Dysstasia [Unknown]
  - Protein urine present [Unknown]
  - Mobility decreased [Unknown]
  - Weight bearing difficulty [Unknown]
  - Ligament disorder [Unknown]
  - Muscle spasms [Unknown]
  - Asthenia [Unknown]
  - IgA nephropathy [Unknown]
